FAERS Safety Report 9694144 (Version 2)
Quarter: 2013Q4

REPORT INFORMATION
  Report Type: Spontaneous
  Country: JP (occurrence: JP)
  Receive Date: 20131118
  Receipt Date: 20131118
  Transmission Date: 20140711
  Serious: Yes (Life-Threatening)
  Sender: FDA-Public Use
  Company Number: JP-B.I. PHARMACEUTICALS,INC./RIDGEFIELD-2013-BI-32918NB

PATIENT
  Age: 85 Year
  Sex: Female

DRUGS (29)
  1. TRAZENTA [Suspect]
     Dosage: 5 MG
     Route: 048
     Dates: start: 20131001, end: 20131010
  2. RYTHMODAN [Suspect]
     Dosage: 300 MG
     Route: 048
     Dates: start: 20131001, end: 20131028
  3. GRACEVIT [Suspect]
     Dosage: 100 MG
     Route: 048
     Dates: start: 20131003, end: 20131008
  4. ANTOBRON / AMBROXOL HYDROCHLORIDE [Concomitant]
     Dosage: 45 MG
     Route: 065
     Dates: start: 20131003, end: 20131014
  5. HUSCODE / ANTITUSSIVE COMBINED DRUG [Concomitant]
     Dosage: 10 ML
     Route: 065
     Dates: start: 20131003, end: 20131014
  6. PIMOBENDAN / PIMOBENDAN [Concomitant]
     Dosage: 2.5 MG
     Route: 065
     Dates: start: 20131001, end: 20131014
  7. MAGNESIUM OXIDE [Concomitant]
     Dosage: 2970 MG
     Route: 065
     Dates: start: 20131007, end: 20131021
  8. CLARITHROMYCIN [Concomitant]
     Dosage: 400 MG
     Route: 065
     Dates: start: 20131008, end: 20131014
  9. BAYASPIRIN / ASPIRIN [Concomitant]
     Dosage: 100 MG
     Route: 065
     Dates: start: 20131001, end: 20131028
  10. CALFINA / ALFACALCIDOL [Concomitant]
     Dosage: 0.5 MCG
     Route: 065
     Dates: start: 20131001, end: 20131014
  11. CALBLOCK / AZELNIDIPINE [Concomitant]
     Dosage: 16 MG
     Route: 065
     Dates: start: 20131001, end: 20131028
  12. BLOPRESS / CANDESARTAN CILEXETIL [Concomitant]
     Dosage: 8 MG
     Route: 065
     Dates: start: 20131001, end: 20131028
  13. LASIX / FUROSEMIDE [Concomitant]
     Dosage: 20 MG
     Route: 065
     Dates: start: 20131001, end: 20131028
  14. THEOLONG / THEOPHYLLINE [Concomitant]
     Dosage: 200 MG
     Route: 065
     Dates: start: 20131001, end: 20131014
  15. MEDICON / DEXTROMETHORPHAN HYDROBROMIDE HYDRATE [Concomitant]
     Dosage: 0.33 G
     Route: 065
     Dates: start: 20131003, end: 20131008
  16. CODEINE PHOSPHATE HYDRATE [Concomitant]
     Dosage: 2 G
     Route: 065
     Dates: start: 20131003, end: 20131008
  17. KEISHIKASHAKUYAKUDAIOTO [Concomitant]
     Dosage: 7.5 G
     Route: 065
     Dates: start: 20131001, end: 20131028
  18. LUNESTA / ESZOPICLONE [Concomitant]
     Route: 065
     Dates: start: 20131002, end: 20131014
  19. YODEL-S / SENNA EXTRACT [Concomitant]
     Route: 065
     Dates: start: 20131005, end: 20131007
  20. MAGTECT / ALUMINUM HYDROXIDE GEL_MAGNESIUM HYDROXIDE [Concomitant]
     Route: 065
     Dates: start: 20131010, end: 20131010
  21. ISOSORBIDE DINITRATE [Concomitant]
     Dosage: 1 ANZ
     Route: 065
     Dates: start: 20131001, end: 20131028
  22. MOHRUS / KETOPROFEN [Concomitant]
     Dosage: 7 ANZ
     Route: 065
     Dates: start: 20131004, end: 20131004
  23. AZUNOL / DIMETHYL ISOPROPYLAZULENE [Concomitant]
     Dosage: 20 G
     Route: 065
     Dates: start: 20131007, end: 20131007
  24. KARY UNI / PIRENOXINE [Concomitant]
     Dosage: 1 ANZ
     Route: 065
     Dates: start: 20131007, end: 20131007
  25. FLAVITAN / FLAVIN ADENINE DINUCLEOTIDE SODIUM [Concomitant]
     Dosage: 1 ANZ
     Route: 065
     Dates: start: 20131007, end: 20131007
  26. PROPETO / WHITE PETROLATUM [Concomitant]
     Dosage: 20 G
     Route: 065
     Dates: start: 20131009, end: 20131009
  27. SOLITA-T NO.1 / INITIATION MEDIUM [Concomitant]
     Dosage: 1 ANZ
     Route: 042
     Dates: start: 20131004, end: 20131009
  28. THIOSPEN / METHYLMETHIONINE SULFONIUM CHLORIDE [Concomitant]
     Dosage: 1 ANZ
     Route: 042
     Dates: start: 20131004, end: 20131009
  29. VC / ASCORBIC ACID [Concomitant]
     Dosage: 1 ANZ
     Route: 042
     Dates: start: 20131004, end: 20131009

REACTIONS (1)
  - Hypoglycaemia [Recovered/Resolved]
